FAERS Safety Report 6731583-4 (Version None)
Quarter: 2010Q2

REPORT INFORMATION
  Report Type: 
  Country: None (occurrence: None)
  Receive Date: 20100518
  Receipt Date: 20100518
  Transmission Date: 20101027
  Serious: Yes (Hospitalization)
  Sender: FDA-Public Use
  Company Number: None

PATIENT
  Sex: Female
  Weight: 56 kg

DRUGS (1)
  1. FOSAMAX [Suspect]
     Dosage: 70 MG WEEKLY PO
     Route: 048

REACTIONS (2)
  - ELECTROCARDIOGRAM CHANGE [None]
  - FEMUR FRACTURE [None]
